FAERS Safety Report 19909759 (Version 2)
Quarter: 2021Q4

REPORT INFORMATION
  Report Type: Spontaneous
  Country: RU (occurrence: RU)
  Receive Date: 20211003
  Receipt Date: 20211019
  Transmission Date: 20220303
  Serious: Yes (Death, Hospitalization)
  Sender: FDA-Public Use
  Company Number: RU-TEVA-2021-RU-1960592

PATIENT
  Age: 71 Year
  Sex: Female

DRUGS (1)
  1. VALSARTAN [Suspect]
     Active Substance: VALSARTAN
     Dosage: 1 TABLET PER DAY FOR 2 YEARS
     Dates: start: 2015, end: 2018

REACTIONS (2)
  - Vasculitis [Unknown]
  - Coronavirus infection [Fatal]

NARRATIVE: CASE EVENT DATE: 20180101
